FAERS Safety Report 16244041 (Version 1)
Quarter: 2019Q2

REPORT INFORMATION
  Report Type: Spontaneous
  Country: US (occurrence: US)
  Receive Date: 20190426
  Receipt Date: 20190426
  Transmission Date: 20190711
  Serious: Yes (Other)
  Sender: FDA-Public Use
  Company Number: US-ASTRAZENECA-2019SE58102

PATIENT
  Age: 752 Month
  Sex: Male
  Weight: 80.7 kg

DRUGS (4)
  1. ALLERGY INJECTIONS [Concomitant]
     Indication: SEASONAL ALLERGY
     Route: 058
  2. PULMICORT FLEXHALER [Suspect]
     Active Substance: BUDESONIDE
     Indication: ASTHMA
     Dosage: 180 UG, TWO PUFFS TWICE DAILY
     Route: 055
     Dates: start: 20190401
  3. ATORVASTATIN [Concomitant]
     Active Substance: ATORVASTATIN
     Indication: BLOOD CHOLESTEROL INCREASED
     Route: 048
  4. METOPROLOL SUCCINATE. [Suspect]
     Active Substance: METOPROLOL SUCCINATE
     Indication: BLOOD PRESSURE ABNORMAL
     Route: 048
     Dates: start: 201005

REACTIONS (6)
  - Device failure [Unknown]
  - Coronary artery occlusion [Unknown]
  - Asthma [Unknown]
  - Memory impairment [Unknown]
  - Circumstance or information capable of leading to medication error [Unknown]
  - Mitral valve disease [Unknown]

NARRATIVE: CASE EVENT DATE: 201005
